FAERS Safety Report 9255052 (Version 1)
Quarter: 2013Q2

REPORT INFORMATION
  Report Type: Spontaneous
  Country: CA (occurrence: None)
  Receive Date: 20130422
  Receipt Date: 20130422
  Transmission Date: 20140414
  Serious: Yes (Other)
  Sender: FDA-Public Use
  Company Number: SYM-2013-02801

PATIENT
  Age: 50 Year
  Sex: Female

DRUGS (4)
  1. FLUOROURACIL (FLUOROURACIL) (FLUOROURACIL) [Suspect]
     Indication: ADENOCARCINOMA OF COLON
     Route: 042
     Dates: start: 20120709, end: 20120907
  2. ELOXATIN [Suspect]
     Indication: ADENOCARCINOMA OF COLON
     Route: 042
     Dates: start: 20120709
  3. CELECOXIB [Suspect]
     Indication: ADENOCARCINOMA OF COLON
  4. CALCIUM FOLINATE [Concomitant]

REACTIONS (2)
  - Embolism venous [None]
  - Jugular vein thrombosis [None]
